FAERS Safety Report 13817164 (Version 1)
Quarter: 2017Q3

REPORT INFORMATION
  Report Type: Spontaneous
  Country: US (occurrence: US)
  Receive Date: 20170731
  Receipt Date: 20170731
  Transmission Date: 20171127
  Serious: No
  Sender: FDA-Public Use
  Company Number: US-MORTON GROVE PHARMACEUTICALS, INC.-2023957

PATIENT
  Sex: Male

DRUGS (3)
  1. PROMETHAZINE WITH DEXTROMETHORPHAN [Suspect]
     Active Substance: DEXTROMETHORPHAN\PROMETHAZINE
  2. PREDNISONE. [Concomitant]
     Active Substance: PREDNISONE
  3. LEVAQUIN [Concomitant]
     Active Substance: LEVOFLOXACIN

REACTIONS (1)
  - Cough [Unknown]
